FAERS Safety Report 10150989 (Version 1)
Quarter: 2014Q2

REPORT INFORMATION
  Report Type: Spontaneous
  Country: US (occurrence: US)
  Receive Date: 20140502
  Receipt Date: 20140502
  Transmission Date: 20141212
  Serious: No
  Sender: FDA-Public Use
  Company Number: US-PFIZER INC-2014118151

PATIENT
  Age: 63 Year
  Sex: Male
  Weight: 95.24 kg

DRUGS (3)
  1. LYRICA [Suspect]
     Indication: RASH
     Dosage: 100 MG, 1X/DAY
     Route: 048
     Dates: start: 2013
  2. LYRICA [Suspect]
     Indication: GRIP STRENGTH DECREASED
  3. LYRICA [Suspect]
     Indication: NERVE INJURY

REACTIONS (1)
  - Drug ineffective [Unknown]
